FAERS Safety Report 16437337 (Version 2)
Quarter: 2019Q3

REPORT INFORMATION
  Report Type: Spontaneous
  Country: JP (occurrence: JP)
  Receive Date: 20190615
  Receipt Date: 20190812
  Transmission Date: 20191004
  Serious: Yes (Other)
  Sender: FDA-Public Use
  Company Number: JP-UCBSA-2019024801

PATIENT
  Age: 6 Decade
  Sex: Female

DRUGS (1)
  1. E KEPPRA [Suspect]
     Active Substance: LEVETIRACETAM
     Indication: EPILEPSY
     Dosage: 1000 MILLIGRAM DAILY
     Route: 048
     Dates: start: 20190504, end: 20190507

REACTIONS (1)
  - Blood creatine phosphokinase increased [Recovered/Resolved]
